FAERS Safety Report 8479436-8 (Version None)
Quarter: 2012Q2

REPORT INFORMATION
  Report Type: 
  Country: None (occurrence: None)
  Receive Date: 20120629
  Receipt Date: 20120625
  Transmission Date: 20120825
  Serious: Yes (Hospitalization)
  Sender: FDA-Public Use
  Company Number: AU-JNJFOC-20120516290

PATIENT
  Sex: Female
  Weight: 65 kg

DRUGS (15)
  1. VITAMIN D [Concomitant]
     Indication: OSTEOPOROSIS
     Route: 048
     Dates: start: 20000101
  2. OXYCONTIN [Concomitant]
     Indication: BACK PAIN
     Route: 048
     Dates: start: 20110806
  3. PLACEBO [Suspect]
     Route: 042
     Dates: start: 20120316
  4. CALCIUM [Concomitant]
     Indication: OSTEOPOROSIS
     Route: 048
     Dates: start: 20000101
  5. COVERSYL PLUS [Concomitant]
     Indication: HYPERTENSION
     Route: 048
     Dates: start: 20101125
  6. GOLIMUMAB [Suspect]
     Route: 042
     Dates: start: 20120518
  7. GOLIMUMAB [Suspect]
     Route: 042
     Dates: start: 20120316
  8. TRAMADOL HCL [Concomitant]
     Indication: PAIN
     Route: 048
     Dates: start: 20100415
  9. GOLIMUMAB [Suspect]
     Indication: RHEUMATOID ARTHRITIS
     Route: 042
     Dates: start: 20101005
  10. PLACEBO [Suspect]
     Indication: RHEUMATOID ARTHRITIS
     Route: 042
     Dates: start: 20101005
  11. PLACEBO [Suspect]
     Route: 042
     Dates: start: 20120518
  12. FOSAMAX [Concomitant]
     Indication: OSTEOPOROSIS
     Route: 048
     Dates: start: 20050101
  13. ENDEP [Concomitant]
     Indication: INSOMNIA
     Route: 048
     Dates: start: 20100415
  14. FOLIC ACID [Concomitant]
     Route: 048
     Dates: start: 20080715
  15. MICARDIS [Concomitant]
     Indication: HYPERTENSION
     Route: 048
     Dates: start: 20070101

REACTIONS (1)
  - DIVERTICULUM [None]
